FAERS Safety Report 9946786 (Version 1)
Quarter: 2014Q1

REPORT INFORMATION
  Report Type: Report from Study
  Country: US (occurrence: US)
  Receive Date: 20140303
  Receipt Date: 20140303
  Transmission Date: 20141002
  Serious: No
  Sender: FDA-Public Use
  Company Number: US-ABBVIE-13P-163-1062857-00

PATIENT
  Age: 67 Year
  Sex: Male

DRUGS (8)
  1. HUMIRA [Suspect]
     Indication: COLITIS ULCERATIVE
     Dates: start: 20130103, end: 201302
  2. HUMIRA [Suspect]
     Dates: start: 201301
  3. IMITREX [Suspect]
     Indication: MIGRAINE
  4. ZOCOR [Concomitant]
     Indication: BLOOD CHOLESTEROL ABNORMAL
     Dosage: 40 MG DAILY
  5. ADVAIR [Concomitant]
     Indication: ASTHMA
     Dosage: ONE PILL TWICE DAILY
  6. BABY ASPIRIN [Concomitant]
     Indication: CARDIOVASCULAR EVENT PROPHYLAXIS
     Dosage: DAILY
  7. FINASTERIDE [Concomitant]
     Indication: BENIGN PROSTATIC HYPERPLASIA
     Dates: end: 201302
  8. TERAZOSIN [Concomitant]
     Indication: BENIGN PROSTATIC HYPERPLASIA
     Dates: end: 201302

REACTIONS (3)
  - Benign prostatic hyperplasia [Unknown]
  - Injection site bruising [Recovering/Resolving]
  - Feeling abnormal [Unknown]
